FAERS Safety Report 4905286-2 (Version None)
Quarter: 2006Q1

REPORT INFORMATION
  Report Type: 
  Country: None (occurrence: None)
  Receive Date: 20060208
  Receipt Date: 20060127
  Transmission Date: 20060701
  Serious: Yes (Hospitalization)
  Sender: FDA-Public Use
  Company Number: PHHO2006FR01818

PATIENT
  Age: 36 Year
  Sex: Male

DRUGS (13)
  1. CYCLOSPORINE [Suspect]
     Indication: RENAL TRANSPLANT
     Dosage: 150 MG, BID
     Route: 048
     Dates: start: 20050823
  2. CYCLOSPORINE [Suspect]
     Dosage: 125 MG, BID
     Route: 048
  3. OMEPRAZOLE [Concomitant]
  4. VALACYCLOVIR HCL [Concomitant]
  5. DACLIZUMAB [Suspect]
     Indication: RENAL TRANSPLANT
     Dosage: 2 MG/KG, 1 X PER ONE DOSE
     Route: 042
     Dates: start: 20050822, end: 20050822
  6. DACLIZUMAB [Suspect]
     Dosage: 75 MG, ONCE/SINGLE
     Route: 042
     Dates: start: 20050905, end: 20050905
  7. MYCOPHENOLATE MOFETIL [Suspect]
     Indication: RENAL TRANSPLANT
     Dosage: 1000 MG, BID
     Route: 048
     Dates: start: 20050822
  8. MYCOPHENOLATE MOFETIL [Suspect]
     Dosage: 500 MG, BID
     Route: 048
  9. CORTICOSTEROIDS [Suspect]
     Indication: RENAL TRANSPLANT
     Dosage: 10 MG, QD
     Route: 048
     Dates: start: 20050823
  10. NIFEDIPINE [Concomitant]
     Dates: start: 20050905
  11. MOPRAL [Concomitant]
     Dates: start: 20050822, end: 20051212
  12. BACTRIM [Concomitant]
     Dates: start: 20050826, end: 20051212
  13. ZELITREX [Concomitant]
     Dates: start: 20050905, end: 20051212

REACTIONS (1)
  - AGRANULOCYTOSIS [None]
